FAERS Safety Report 14197761 (Version 2)
Quarter: 2017Q4

REPORT INFORMATION
  Report Type: Spontaneous
  Country: JP (occurrence: JP)
  Receive Date: 20171117
  Receipt Date: 20171226
  Transmission Date: 20180321
  Serious: Yes (Other)
  Sender: FDA-Public Use
  Company Number: JP-UCBSA-2017045793

PATIENT
  Age: 80 Year
  Sex: Male

DRUGS (1)
  1. E KEPPRA [Suspect]
     Active Substance: LEVETIRACETAM
     Indication: EPILEPSY
     Dosage: 1500 MG DAILY DOSE
     Route: 048

REACTIONS (4)
  - Seizure [Unknown]
  - Road traffic accident [Unknown]
  - Psychiatric symptom [Recovered/Resolved]
  - Anger [Unknown]
